FAERS Safety Report 10249429 (Version 1)
Quarter: 2014Q2

REPORT INFORMATION
  Report Type: Spontaneous
  Country: US (occurrence: None)
  Receive Date: 20140619
  Receipt Date: 20140619
  Transmission Date: 20141212
  Serious: Yes (Life-Threatening, Hospitalization)
  Sender: FDA-Public Use
  Company Number: None

PATIENT
  Age: 70 Year
  Sex: Male
  Weight: 107.1 kg

DRUGS (2)
  1. ENOXAPARIN (GENERIC) [Suspect]
     Indication: ANTIPHOSPHOLIPID SYNDROME
     Route: 058
     Dates: start: 20140529, end: 20140602
  2. WARFARIN [Suspect]
     Indication: ANTIPHOSPHOLIPID SYNDROME
     Dates: start: 20121113

REACTIONS (4)
  - Dyspnoea [None]
  - Retroperitoneal haematoma [None]
  - Haemorrhage [None]
  - Bacteraemia [None]
